FAERS Safety Report 24645374 (Version 2)
Quarter: 2024Q4

REPORT INFORMATION
  Report Type: Spontaneous
  Country: CA (occurrence: CA)
  Receive Date: 20241121
  Receipt Date: 20241227
  Transmission Date: 20250115
  Serious: Yes (Death, Hospitalization)
  Sender: ASTELLAS
  Company Number: CA-PFIZER INC-PV202400143049

PATIENT
  Age: 79 Year
  Sex: Male
  Weight: 83.5 kg

DRUGS (2)
  1. PADCEV [Suspect]
     Active Substance: ENFORTUMAB VEDOTIN\ENFORTUMAB VEDOTIN-EJFV
     Indication: Product used for unknown indication
     Dosage: POWDER FOR SOLUTION FOR INFUSION; 100 MG D1 AND D8 OF 21 DAY CYCLE
     Route: 065
     Dates: start: 20241024
  2. PADCEV [Suspect]
     Active Substance: ENFORTUMAB VEDOTIN\ENFORTUMAB VEDOTIN-EJFV
     Dosage: POWDER FOR SOLUTION FOR INFUSION; 100 MG D1 AND D8 OF 21 DAY CYCLE
     Route: 065
     Dates: start: 20241031

REACTIONS (7)
  - Death [Fatal]
  - Exfoliative rash [Not Recovered/Not Resolved]
  - Pyrexia [Not Recovered/Not Resolved]
  - Malaise [Not Recovered/Not Resolved]
  - Nausea [Unknown]
  - Fatigue [Unknown]
  - Blood pressure abnormal [Unknown]

NARRATIVE: CASE EVENT DATE: 20240101
